FAERS Safety Report 16871973 (Version 2)
Quarter: 2019Q4

REPORT INFORMATION
  Report Type: Report from Study
  Country: US (occurrence: US)
  Receive Date: 20191001
  Receipt Date: 20191030
  Transmission Date: 20200122
  Serious: Yes (Hospitalization, Other)
  Sender: FDA-Public Use
  Company Number: US-GLAXOSMITHKLINE-2019-TSO00151-US

PATIENT
  Age: 62 Year
  Sex: Female

DRUGS (8)
  1. NIRAPARIB [Suspect]
     Active Substance: NIRAPARIB
     Indication: OVARIAN CANCER
     Dosage: 300 MG, QD
     Dates: start: 20181229, end: 201901
  2. NIRAPARIB [Suspect]
     Active Substance: NIRAPARIB
     Dosage: 100 MG, QD,AFTER DINNER
     Route: 048
     Dates: start: 20190121, end: 20190430
  3. NIRAPARIB [Suspect]
     Active Substance: NIRAPARIB
     Dosage: 200 MG, AFTER DINNER
     Route: 048
     Dates: start: 20190501, end: 20190711
  4. GLUCOSAMINE [Concomitant]
     Active Substance: GLUCOSAMINE
     Indication: PROPHYLAXIS
     Dosage: UNK
  5. NIRAPARIB [Suspect]
     Active Substance: NIRAPARIB
     Dosage: 100 MG, WITH FOOD POST DINNER
     Route: 048
     Dates: start: 20190712, end: 20191008
  6. NIRAPARIB [Suspect]
     Active Substance: NIRAPARIB
     Dosage: 200 MG DAILY PM WITH FOOD AFTER DINNER
     Route: 048
     Dates: start: 20191009
  7. PROBIOTIC                          /06395501/ [Concomitant]
     Active Substance: BIFIDOBACTERIUM ANIMALIS LACTIS
     Indication: PROPHYLAXIS
     Dosage: UNK
  8. MULTIVITAMIN                       /07504101/ [Concomitant]
     Active Substance: VITAMINS
     Indication: PROPHYLAXIS
     Dosage: UNK

REACTIONS (19)
  - Haemoglobin decreased [Recovered/Resolved]
  - Lacrimation increased [Recovered/Resolved]
  - Stomatitis [Recovered/Resolved]
  - Cardiac arrest [Unknown]
  - Dry mouth [Not Recovered/Not Resolved]
  - Constipation [Unknown]
  - Hiccups [Not Recovered/Not Resolved]
  - Nausea [Recovered/Resolved]
  - Product dose omission [Unknown]
  - Cystitis [Recovered/Resolved]
  - Muscular weakness [Recovered/Resolved]
  - Dyspnoea exertional [Unknown]
  - Off label use [Unknown]
  - Abdominal discomfort [Recovered/Resolved]
  - Red blood cell count decreased [Not Recovered/Not Resolved]
  - Eye pruritus [Recovered/Resolved]
  - Carbohydrate antigen 125 increased [Unknown]
  - Fatigue [Recovered/Resolved]
  - Abdominal pain [Recovered/Resolved]

NARRATIVE: CASE EVENT DATE: 20190704
